FAERS Safety Report 10468518 (Version 1)
Quarter: 2014Q3

REPORT INFORMATION
  Report Type: Report from Study
  Country: BR (occurrence: BR)
  Receive Date: 20140922
  Receipt Date: 20140922
  Transmission Date: 20150326
  Serious: Yes (Other)
  Sender: FDA-Public Use
  Company Number: PHHY2014BR123221

PATIENT
  Sex: Female

DRUGS (1)
  1. TRILEPTAL [Suspect]
     Active Substance: OXCARBAZEPINE
     Dosage: 600 MG, UNK

REACTIONS (7)
  - Epilepsy [Unknown]
  - Vitamin D deficiency [Unknown]
  - Osteopenia [Unknown]
  - Mental disorder [Unknown]
  - Bone loss [Unknown]
  - Memory impairment [Unknown]
  - Calcium deficiency [Unknown]
